FAERS Safety Report 25177686 (Version 2)
Quarter: 2025Q2

REPORT INFORMATION
  Report Type: Spontaneous
  Country: GB (occurrence: GB)
  Receive Date: 20250409
  Receipt Date: 20250423
  Transmission Date: 20250717
  Serious: Yes (Other)
  Sender: TEVA
  Company Number: GB-TEVA-VS-3317939

PATIENT
  Age: 75 Year
  Sex: Male

DRUGS (2)
  1. METHOTREXATE [Suspect]
     Active Substance: METHOTREXATE
     Indication: Seronegative arthritis
     Route: 065
  2. MILTEFOSINE [Suspect]
     Active Substance: MILTEFOSINE
     Indication: Leishmaniasis
     Route: 048

REACTIONS (3)
  - Leishmaniasis [Recovered/Resolved with Sequelae]
  - Drug ineffective [Unknown]
  - Pain [Unknown]
